FAERS Safety Report 21247813 (Version 1)
Quarter: 2022Q3

REPORT INFORMATION
  Report Type: Report from Study
  Country: US (occurrence: US)
  Receive Date: 20220824
  Receipt Date: 20220824
  Transmission Date: 20221027
  Serious: Yes (Other)
  Sender: FDA-Public Use
  Company Number: US-ABBVIE-22K-163-4475396-00

PATIENT
  Age: 77 Year
  Sex: Male

DRUGS (1)
  1. IMBRUVICA [Suspect]
     Active Substance: IBRUTINIB
     Indication: Chronic lymphocytic leukaemia
     Route: 048
     Dates: start: 202001

REACTIONS (9)
  - Hypoacusis [Unknown]
  - Gingival blister [Unknown]
  - Gingival bleeding [Unknown]
  - Tooth erosion [Unknown]
  - Blood urea increased [Unknown]
  - Oral disorder [Unknown]
  - Tooth disorder [Unknown]
  - COVID-19 [Recovered/Resolved]
  - Blood creatinine increased [Unknown]

NARRATIVE: CASE EVENT DATE: 20220717
